FAERS Safety Report 17478710 (Version 7)
Quarter: 2020Q4

REPORT INFORMATION
  Report Type: Report from Study
  Country: None (occurrence: US)
  Receive Date: 20200228
  Receipt Date: 20201210
  Transmission Date: 20210113
  Serious: Yes (Hospitalization, Other)
  Sender: FDA-Public Use
  Company Number: US-INSMED, INC.-US-INS-20-00433

PATIENT
  Age: 68 Year
  Sex: Female

DRUGS (1)
  1. ARIKAYCE [Suspect]
     Active Substance: AMIKACIN
     Indication: PNEUMONIA
     Route: 055
     Dates: start: 20190911, end: 2020

REACTIONS (4)
  - Malaise [Not Recovered/Not Resolved]
  - Drug ineffective [Unknown]
  - Hospitalisation [Unknown]
  - Transfusion [Unknown]

NARRATIVE: CASE EVENT DATE: 20201030
